FAERS Safety Report 10639415 (Version 2)
Quarter: 2014Q4

REPORT INFORMATION
  Report Type: Spontaneous
  Country: IT (occurrence: IT)
  Receive Date: 20141208
  Receipt Date: 20141208
  Transmission Date: 20150529
  Serious: Yes (Other)
  Sender: FDA-Public Use
  Company Number: PHHY2014IT153340

PATIENT
  Age: 42 Year
  Sex: Female

DRUGS (3)
  1. AMBRAMICINA [Concomitant]
     Indication: HELICOBACTER GASTRITIS
     Dosage: 4 DF, UNK
     Route: 048
     Dates: start: 20140830, end: 20140830
  2. LEVOFLOXACIN. [Suspect]
     Active Substance: LEVOFLOXACIN
     Indication: HELICOBACTER GASTRITIS
     Dosage: 1000 MG, ONCE/SINGLE
     Route: 048
     Dates: start: 20140830, end: 20140831
  3. ESOMEPRAZOLE [Concomitant]
     Active Substance: ESOMEPRAZOLE
     Indication: HELICOBACTER GASTRITIS
     Dosage: 40 MG, UNK
     Route: 048

REACTIONS (3)
  - Vertigo [Recovered/Resolved]
  - Diplopia [Recovered/Resolved]
  - Malaise [Recovered/Resolved]

NARRATIVE: CASE EVENT DATE: 20140831
